FAERS Safety Report 6636052-8 (Version None)
Quarter: 2010Q1

REPORT INFORMATION
  Report Type: 
  Country: None (occurrence: None)
  Receive Date: 20100316
  Receipt Date: 20100305
  Transmission Date: 20100710
  Serious: Yes (Other)
  Sender: FDA-Public Use
  Company Number: PHHY2010ES13262

PATIENT
  Age: 52 Year
  Sex: Male

DRUGS (2)
  1. ZOMETA [Suspect]
     Indication: METASTASES TO BONE
  2. TAMOXIFEN CITRATE [Concomitant]

REACTIONS (3)
  - DENTAL DISCOMFORT [None]
  - OSTEONECROSIS [None]
  - PERIODONTAL DISEASE [None]
